FAERS Safety Report 9436196 (Version 1)
Quarter: 2013Q3

REPORT INFORMATION
  Report Type: Spontaneous
  Country: US (occurrence: US)
  Receive Date: 20130801
  Receipt Date: 20130801
  Transmission Date: 20140515
  Serious: Yes (Hospitalization, Other)
  Sender: FDA-Public Use
  Company Number: US-TMC-CABO-13002840

PATIENT
  Age: 74 Year
  Sex: Male

DRUGS (9)
  1. COMETRIQ [Suspect]
     Indication: PROSTATE CANCER
     Dosage: 60 MG, QD
     Route: 048
     Dates: start: 20130604, end: 20130604
  2. COMETRIQ [Suspect]
     Indication: METASTASES TO BONE
     Dosage: 40 MG, QD
     Dates: start: 20130605, end: 20130608
  3. COMETRIQ [Suspect]
     Dosage: 60 MG, QD
     Route: 048
     Dates: start: 20130609, end: 20130622
  4. BABY ASPIRIN [Concomitant]
  5. PROSCAR [Concomitant]
  6. AVODART [Concomitant]
  7. NEURONTIN [Concomitant]
  8. VITAMIN D [Concomitant]
  9. DECADRON [Concomitant]

REACTIONS (4)
  - Haematuria [Not Recovered/Not Resolved]
  - Platelet count decreased [Unknown]
  - Anaemia [Unknown]
  - Diarrhoea [Recovered/Resolved]
